FAERS Safety Report 5907801-9 (Version None)
Quarter: 2008Q3

REPORT INFORMATION
  Report Type: 
  Country: None (occurrence: None)
  Receive Date: 20080929
  Receipt Date: 20080919
  Transmission Date: 20090109
  Serious: Yes (Hospitalization)
  Sender: FDA-Public Use
  Company Number: 2008SP002249

PATIENT
  Age: 58 Year
  Sex: Male

DRUGS (5)
  1. LUNESTA [Suspect]
     Indication: INSOMNIA
     Dosage: 3 MG PRN ORAL; 6 MG ORAL; 3 MG PRN ORAL
     Route: 048
     Dates: start: 20050101, end: 20080101
  2. LUNESTA [Suspect]
     Indication: INSOMNIA
     Dosage: 3 MG PRN ORAL; 6 MG ORAL; 3 MG PRN ORAL
     Route: 048
     Dates: start: 20080101
  3. AMBIEN [Suspect]
     Dosage: PRN
  4. ADDERALL 10 [Suspect]
     Indication: ATTENTION DEFICIT/HYPERACTIVITY DISORDER
  5. FEXOFENADINE [Concomitant]

REACTIONS (3)
  - DRUG INEFFECTIVE [None]
  - THROMBOSIS [None]
  - TONGUE ULCERATION [None]
